FAERS Safety Report 15744159 (Version 8)
Quarter: 2019Q2

REPORT INFORMATION
  Report Type: Report from Study
  Country: CA (occurrence: CA)
  Receive Date: 20181220
  Receipt Date: 20190613
  Transmission Date: 20190711
  Serious: Yes (Hospitalization)
  Sender: FDA-Public Use
  Company Number: CA-ROCHE-2228356

PATIENT
  Age: 49 Year
  Sex: Female
  Weight: 61.4 kg

DRUGS (7)
  1. PANTOLOC [PANTOPRAZOLE] [Concomitant]
     Active Substance: PANTOPRAZOLE SODIUM
     Route: 065
     Dates: start: 20181206
  2. RO6870810 (BET INHIBITOR) [Suspect]
     Active Substance: RO-6870810
     Indication: TRIPLE NEGATIVE BREAST CANCER
  3. ATEZOLIZUMAB. [Suspect]
     Active Substance: ATEZOLIZUMAB
     Indication: OVARIAN CANCER
     Dosage: DATE OF MOST RECENT DOSE OF ATEZOLIZUMAB PRIOR TO AE ONSET: 27/NOV/2018 AT 11:29
     Route: 042
     Dates: start: 20181127
  4. ATEZOLIZUMAB. [Suspect]
     Active Substance: ATEZOLIZUMAB
     Indication: TRIPLE NEGATIVE BREAST CANCER
  5. AMOXICILLIN/CLAVULANIC ACID [Concomitant]
     Active Substance: AMOXICILLIN\CLAVULANIC ACID
     Route: 065
     Dates: start: 20181204, end: 20181206
  6. AMOXICILLIN/CLAVULANIC ACID [Concomitant]
     Active Substance: AMOXICILLIN\CLAVULANIC ACID
     Route: 065
     Dates: start: 20181207, end: 20181208
  7. RO6870810 (BET INHIBITOR) [Suspect]
     Active Substance: RO-6870810
     Indication: OVARIAN CANCER
     Dosage: AT INITIAL PLANNED DOSES OF 0.30, 0.45, OR 0.65 MG/KG FOR THE FIRST 14 DAYS OF A 21-DAY CYCLE?DATE O
     Route: 058
     Dates: start: 20181127

REACTIONS (1)
  - Systemic immune activation [Recovering/Resolving]

NARRATIVE: CASE EVENT DATE: 20181128
